FAERS Safety Report 9241529 (Version 1)
Quarter: 2013Q2

REPORT INFORMATION
  Report Type: Spontaneous
  Country: US (occurrence: US)
  Receive Date: 20130419
  Receipt Date: 20130419
  Transmission Date: 20140414
  Serious: No
  Sender: FDA-Public Use
  Company Number: US-BAYER-2013-049296

PATIENT
  Sex: Female
  Weight: 88 kg

DRUGS (8)
  1. BETASERON [Suspect]
     Dosage: 0.25 MG, QOD
     Route: 058
  2. EVISTA [RALOXIFENE HYDROCHLORIDE] [Concomitant]
     Dosage: 60 MG, UNK
  3. IBUPROFEN [Concomitant]
     Dosage: 200 MG, UNK
  4. NEXIUM [Concomitant]
     Dosage: 20 MG, UNK
  5. MULTIVITAMIN [Concomitant]
     Dosage: UNK
  6. CLARITIN [Concomitant]
     Dosage: 10 MG, UNK
  7. VITAMIN D [Concomitant]
     Dosage: 400 U, UNK
  8. VITAMIN B COMPLEX [Concomitant]
     Dosage: UNK

REACTIONS (1)
  - Influenza like illness [Unknown]
